FAERS Safety Report 4757476-X (Version None)
Quarter: 2005Q3

REPORT INFORMATION
  Report Type: 
  Country: None (occurrence: None)
  Receive Date: 20050831
  Receipt Date: 20050819
  Transmission Date: 20060218
  Serious: Yes (Hospitalization, Other)
  Sender: FDA-Public Use
  Company Number: US-MERCK-0508USA03281

PATIENT
  Age: 70 Year
  Sex: Male

DRUGS (4)
  1. ZETIA [Suspect]
     Route: 048
  2. ZETIA [Suspect]
     Route: 048
     Dates: start: 20050101, end: 20050101
  3. LESCOL XL [Suspect]
     Route: 065
  4. LESCOL XL [Suspect]
     Route: 065
     Dates: start: 20050101, end: 20050101

REACTIONS (4)
  - ABDOMINAL PAIN [None]
  - ALANINE AMINOTRANSFERASE INCREASED [None]
  - ASPARTATE AMINOTRANSFERASE INCREASED [None]
  - GALLBLADDER DISORDER [None]
